FAERS Safety Report 4939306-6 (Version None)
Quarter: 2006Q1

REPORT INFORMATION
  Report Type: 
  Country: None (occurrence: None)
  Receive Date: 20060306
  Receipt Date: 20060221
  Transmission Date: 20060701
  Serious: Yes (Life-Threatening)
  Sender: FDA-Public Use
  Company Number: A-CH2006-11681

PATIENT
  Age: 17 Year
  Sex: Male
  Weight: 60 kg

DRUGS (2)
  1. TRACLEER [Suspect]
     Indication: PULMONARY HYPERTENSION
     Dosage: 125 MG, BID, ORAL
     Route: 048
     Dates: start: 20050201, end: 20060101
  2. ASPIRIN [Concomitant]

REACTIONS (3)
  - BLOOD POTASSIUM INCREASED [None]
  - PALPITATIONS [None]
  - SYNCOPE [None]
